FAERS Safety Report 21702348 (Version 2)
Quarter: 2022Q4

REPORT INFORMATION
  Report Type: Spontaneous
  Country: US (occurrence: US)
  Receive Date: 20221208
  Receipt Date: 20221212
  Transmission Date: 20230112
  Serious: Yes (Life-Threatening, Hospitalization, Other)
  Sender: FDA-Public Use
  Company Number: None

PATIENT
  Age: 5 Decade
  Sex: Female

DRUGS (1)
  1. PREDNISOLONE [Suspect]
     Active Substance: PREDNISOLONE
     Indication: Hepatitis alcoholic
     Dosage: 40 MILLIGRAM, QD
     Route: 065

REACTIONS (7)
  - Respiratory distress [Recovered/Resolved]
  - Pulmonary oedema [Recovered/Resolved]
  - Oedema [Recovered/Resolved]
  - Spontaneous bacterial peritonitis [Recovered/Resolved]
  - Salmonellosis [Recovered/Resolved]
  - Sepsis [Recovered/Resolved]
  - Typhoid fever [Recovered/Resolved]
